FAERS Safety Report 25842342 (Version 1)
Quarter: 2025Q3

REPORT INFORMATION
  Report Type: Report from Study
  Country: US (occurrence: US)
  Receive Date: 20250924
  Receipt Date: 20250924
  Transmission Date: 20251021
  Serious: Yes (Other)
  Sender: ABBVIE
  Company Number: US-ABBVIE-6190303

PATIENT
  Age: 48 Year
  Sex: Female

DRUGS (4)
  1. SKYRIZI [Suspect]
     Active Substance: RISANKIZUMAB-RZAA
     Indication: Psoriatic arthropathy
     Route: 058
     Dates: start: 202409, end: 202409
  2. SKYRIZI [Suspect]
     Active Substance: RISANKIZUMAB-RZAA
     Indication: Psoriasis
     Route: 058
     Dates: start: 20241023, end: 20241023
  3. SKYRIZI [Suspect]
     Active Substance: RISANKIZUMAB-RZAA
     Dosage: FORM STRENGTH: 150 MG, LAST ADMINISTRATION IN 2025
     Route: 058
     Dates: start: 202501
  4. SKYRIZI [Suspect]
     Active Substance: RISANKIZUMAB-RZAA
     Dosage: FORM STRENGTH: 150 MG
     Route: 058
     Dates: start: 202506

REACTIONS (7)
  - Metabolic surgery [Unknown]
  - General physical condition [Unknown]
  - Pain [Unknown]
  - Arthralgia [Not Recovered/Not Resolved]
  - Myalgia [Not Recovered/Not Resolved]
  - Pain of skin [Not Recovered/Not Resolved]
  - Skin plaque [Not Recovered/Not Resolved]

NARRATIVE: CASE EVENT DATE: 20250101
